FAERS Safety Report 18970398 (Version 1)
Quarter: 2021Q1

REPORT INFORMATION
  Report Type: Report from Study
  Country: FR (occurrence: FR)
  Receive Date: 20210304
  Receipt Date: 20210304
  Transmission Date: 20210420
  Serious: Yes (Hospitalization)
  Sender: FDA-Public Use
  Company Number: FR-PFIZER INC-2020330402

PATIENT
  Weight: 34 kg

DRUGS (15)
  1. MITOXANTRONE HCL [Suspect]
     Active Substance: MITOXANTRONE HYDROCHLORIDE
     Indication: ACUTE MYELOID LEUKAEMIA
     Dosage: 40 MG/M2, 1X/DAY
     Route: 042
     Dates: start: 20200722, end: 20200725
  2. GEMTUZUMAB OZOGAMICIN [Suspect]
     Active Substance: GEMTUZUMAB OZOGAMICIN
     Indication: ACUTE MYELOID LEUKAEMIA
     Dosage: 2.9 MG (OTHER)
     Route: 042
     Dates: start: 20200724, end: 20200730
  3. CASPOFUNGINE [Concomitant]
     Active Substance: CASPOFUNGIN
     Indication: FEBRILE NEUTROPENIA
     Dosage: 72 MG/M2, 1X/DAY
     Dates: start: 20200804, end: 20200807
  4. MEROPENEM. [Concomitant]
     Active Substance: MEROPENEM
     Indication: FEBRILE NEUTROPENIA
     Dosage: 20.6 MG/KG, 3X/DAY
     Dates: start: 20200812, end: 20200828
  5. CEFEPIM [CEFEPIME] [Concomitant]
     Active Substance: CEFEPIME HYDROCHLORIDE
     Indication: CELLULITIS
     Dosage: UNK
     Dates: start: 20200823, end: 20200828
  6. CYTARABINE. [Suspect]
     Active Substance: CYTARABINE
     Indication: ACUTE MYELOID LEUKAEMIA
     Dosage: 200 MG, 1X/DAY
     Route: 042
     Dates: start: 20200722, end: 20200801
  7. CIPROFLOXACINE [CIPROFLOXACIN] [Concomitant]
     Active Substance: CIPROFLOXACIN
     Indication: FEBRILE NEUTROPENIA
     Dosage: 7.5 MG/KG, 1X/DAY
     Dates: start: 20200804, end: 20200807
  8. CIPROFLOXACINE [CIPROFLOXACIN] [Concomitant]
     Active Substance: CIPROFLOXACIN
     Indication: CELLULITIS
     Dosage: 5.2 MG/KG, 1X/DAY
     Dates: start: 20200817, end: 20200823
  9. TAZOCILLINE [Concomitant]
     Active Substance: PIPERACILLIN SODIUM\TAZOBACTAM SODIUM
     Indication: FEBRILE NEUTROPENIA
     Dosage: 102.1 MG/KG, 3X/DAY
     Dates: start: 20200728, end: 20200812
  10. AMIKACINE [AMIKACIN] [Concomitant]
     Active Substance: AMIKACIN
     Indication: FEBRILE NEUTROPENIA
     Dosage: 50 MG, 1X/DAY
     Dates: start: 20200809, end: 20200812
  11. ZEBETA [Concomitant]
     Active Substance: BISOPROLOL FUMARATE
     Indication: PSEUDOMONAS INFECTION
     Dosage: 1400 MG, 2X/DAY
     Dates: start: 20200828, end: 20200904
  12. VANCOMYCINE [VANCOMYCIN] [Concomitant]
     Active Substance: VANCOMYCIN
     Dosage: 74.9 MG/KG, 2X/DAY
     Dates: start: 20200823, end: 20200828
  13. AMBISOME [Concomitant]
     Active Substance: AMPHOTERICIN B
     Indication: FEBRILE NEUTROPENIA
     Dosage: 50 MG, 1X/DAY
     Dates: start: 20200807, end: 20200927
  14. VANCOMYCINE [VANCOMYCIN] [Concomitant]
     Active Substance: VANCOMYCIN
     Indication: FEBRILE NEUTROPENIA
     Dosage: 14.9 MG/KG, 2X/DAY
     Dates: start: 20200801, end: 20200804
  15. TEICOPLANINE [Concomitant]
     Active Substance: TEICOPLANIN
     Indication: FEBRILE NEUTROPENIA
     Dosage: 10.1 MG/KG, 1X/DAY
     Dates: start: 20200804, end: 20200821

REACTIONS (2)
  - Upper respiratory tract infection [Not Recovered/Not Resolved]
  - Pneumonia [Recovered/Resolved]

NARRATIVE: CASE EVENT DATE: 20200818
